FAERS Safety Report 21267056 (Version 1)
Quarter: 2022Q3

REPORT INFORMATION
  Report Type: Spontaneous
  Country: US (occurrence: US)
  Receive Date: 20220829
  Receipt Date: 20220829
  Transmission Date: 20221027
  Serious: Yes (Other)
  Sender: FDA-Public Use
  Company Number: US-Blueprint Medicines Corporation-SP-US-2022-002623

PATIENT
  Sex: Male

DRUGS (1)
  1. AYVAKIT [Suspect]
     Active Substance: AVAPRITINIB
     Indication: Systemic mastocytosis
     Route: 048
     Dates: start: 20210501

REACTIONS (10)
  - Autoimmune thyroiditis [Unknown]
  - Drug ineffective [Unknown]
  - Symptom recurrence [Unknown]
  - Tryptase increased [Unknown]
  - Rash vesicular [Unknown]
  - Burning sensation [Unknown]
  - Thyroid function test abnormal [Unknown]
  - Feeling abnormal [Unknown]
  - Skin oedema [Unknown]
  - Pruritus [Unknown]
